FAERS Safety Report 14366332 (Version 1)
Quarter: 2018Q1

REPORT INFORMATION
  Report Type: Report from Study
  Country: US (occurrence: US)
  Receive Date: 20180109
  Receipt Date: 20180109
  Transmission Date: 20180509
  Serious: Yes (Hospitalization, Other)
  Sender: FDA-Public Use
  Company Number: US-GILEAD-2018-0314503

PATIENT
  Age: 69 Year
  Sex: Female

DRUGS (12)
  1. ADCIRCA [Concomitant]
     Active Substance: TADALAFIL
  2. SPIRONOLACTONE. [Concomitant]
     Active Substance: SPIRONOLACTONE
  3. METOPROLOL. [Concomitant]
     Active Substance: METOPROLOL
  4. FOLIC ACID. [Concomitant]
     Active Substance: FOLIC ACID
  5. ZOLOFT [Concomitant]
     Active Substance: SERTRALINE HYDROCHLORIDE
  6. SENNA                              /00142201/ [Concomitant]
     Active Substance: SENNA LEAF
  7. AMBRISENTAN [Suspect]
     Active Substance: AMBRISENTAN
     Indication: PRODUCT USED FOR UNKNOWN INDICATION
     Dosage: 10 MG, UNK
     Route: 065
  8. MULTIVITAMINS                      /00116001/ [Concomitant]
     Active Substance: VITAMINS
  9. PREDNISONE. [Concomitant]
     Active Substance: PREDNISONE
  10. ATORVASTATIN [Concomitant]
     Active Substance: ATORVASTATIN
  11. DOCUSATE [Concomitant]
     Active Substance: DOCUSATE
  12. CELLCEPT [Concomitant]
     Active Substance: MYCOPHENOLATE MOFETIL\MYCOPHENOLATE MOFETIL HYDROCHLORIDE

REACTIONS (1)
  - Small intestinal obstruction [Recovered/Resolved]

NARRATIVE: CASE EVENT DATE: 20171225
